FAERS Safety Report 6384918-9 (Version None)
Quarter: 2009Q4

REPORT INFORMATION
  Report Type: 
  Country: None (occurrence: None)
  Receive Date: 20091002
  Receipt Date: 20090904
  Transmission Date: 20100525
  Serious: No
  Sender: FDA-Public Use
  Company Number: A0771121A

PATIENT
  Sex: Female

DRUGS (10)
  1. REQUIP XL [Suspect]
     Indication: RESTLESS LEGS SYNDROME
     Dosage: 2MG AT NIGHT
     Route: 048
     Dates: start: 20080918, end: 20080920
  2. REQUIP [Suspect]
     Indication: RESTLESS LEGS SYNDROME
     Dosage: 1MG UNKNOWN
     Route: 048
  3. VYTORIN [Concomitant]
  4. DIOVAN [Concomitant]
  5. CELEXA [Concomitant]
  6. NEXIUM [Concomitant]
  7. VITAMIN D [Concomitant]
  8. LYRICA [Concomitant]
  9. KLONOPIN [Concomitant]
     Indication: RESTLESS LEGS SYNDROME
  10. ZOCOR [Concomitant]

REACTIONS (5)
  - ADVERSE REACTION [None]
  - ARTHROPOD BITE [None]
  - INSOMNIA [None]
  - NAUSEA [None]
  - RESTLESS LEGS SYNDROME [None]
